FAERS Safety Report 7511277-8 (Version None)
Quarter: 2011Q2

REPORT INFORMATION
  Report Type: 
  Country: None (occurrence: None)
  Receive Date: 20110531
  Receipt Date: 20110120
  Transmission Date: 20111010
  Serious: Yes (Hospitalization, Other)
  Sender: FDA-Public Use
  Company Number: US-BAYER-201038239NA

PATIENT
  Sex: Female
  Weight: 102.95 kg

DRUGS (4)
  1. ADVIL LIQUI-GELS [Concomitant]
  2. YAZ [Suspect]
     Indication: ACNE
     Dosage: UNK
     Route: 048
     Dates: start: 20050707, end: 20060101
  3. AZITHROMYCIN [Concomitant]
  4. YASMIN [Suspect]
     Indication: ACNE
     Route: 048

REACTIONS (9)
  - INJURY [None]
  - MULTIPLE INJURIES [None]
  - BRONCHITIS [None]
  - CHOLECYSTECTOMY [None]
  - CHOLECYSTITIS [None]
  - CALCULUS URETERIC [None]
  - CHOLELITHIASIS [None]
  - PAIN [None]
  - RESPIRATORY TRACT INFECTION [None]
